FAERS Safety Report 15570453 (Version 1)
Quarter: 2018Q4

REPORT INFORMATION
  Report Type: Spontaneous
  Country: US (occurrence: US)
  Receive Date: 20181026
  Receipt Date: 20181026
  Transmission Date: 20190205
  Serious: Yes (Hospitalization)
  Sender: FDA-Public Use
  Company Number: None

PATIENT
  Age: 68 Year
  Sex: Male
  Weight: 140 kg

DRUGS (3)
  1. 5-FLUOROURACIL (5-FU) (19893) 0 MG [Suspect]
     Active Substance: FLUOROURACIL
     Indication: SURGERY
     Dates: end: 20180803
  2. ELOXATIN [Suspect]
     Active Substance: OXALIPLATIN
     Indication: SURGERY
     Dates: end: 20180801
  3. LEUCOVORIN CALCIUM 0 MG [Suspect]
     Active Substance: LEUCOVORIN CALCIUM
     Indication: SURGERY
     Dates: end: 20180801

REACTIONS (3)
  - Respiratory failure [None]
  - Anaesthetic complication [None]
  - Sleep apnoea syndrome [None]

NARRATIVE: CASE EVENT DATE: 20181002
